FAERS Safety Report 24262674 (Version 3)
Quarter: 2024Q4

REPORT INFORMATION
  Report Type: Spontaneous
  Country: US (occurrence: US)
  Receive Date: 20240829
  Receipt Date: 20241018
  Transmission Date: 20250115
  Serious: No
  Sender: ASTELLAS
  Company Number: US-ASTELLAS-2024-AER-002920

PATIENT
  Age: 56 Year
  Sex: Female

DRUGS (2)
  1. VEOZAH [Suspect]
     Active Substance: FEZOLINETANT
     Indication: Hot flush
     Route: 065
     Dates: start: 202407, end: 20240915
  2. VEOZAH [Suspect]
     Active Substance: FEZOLINETANT
     Dosage: ONGOING
     Route: 065
     Dates: start: 20240916

REACTIONS (2)
  - Migraine [Unknown]
  - Brain fog [Unknown]
